FAERS Safety Report 8349592-0 (Version None)
Quarter: 2012Q2

REPORT INFORMATION
  Report Type: 
  Country: None (occurrence: None)
  Receive Date: 20120510
  Receipt Date: 20120504
  Transmission Date: 20120825
  Serious: Yes (Hospitalization, Other)
  Sender: FDA-Public Use
  Company Number: PHHY2011ZA106348

PATIENT
  Sex: Female

DRUGS (7)
  1. GLIMEPIRIDE [Concomitant]
     Dosage: UNK UKN, UNK
  2. LEVETIRACETAM [Concomitant]
  3. TEGRETOL-XR [Suspect]
     Dosage: 400 MG, UNK
     Dates: start: 20040101
  4. CELESTAMINE TAB [Concomitant]
     Indication: PYREXIA
  5. GLUCOPHAGE [Concomitant]
  6. TOPIRAMATE [Concomitant]
  7. GALVUS [Suspect]
     Dosage: 1 DF, UNK
     Dates: start: 20111001

REACTIONS (8)
  - PNEUMONIA [None]
  - ONYCHOCLASIS [None]
  - BLOOD GLUCOSE INCREASED [None]
  - PALPITATIONS [None]
  - ALOPECIA [None]
  - MYOCARDIAL INFARCTION [None]
  - BUNDLE BRANCH BLOCK LEFT [None]
  - WEIGHT DECREASED [None]
